FAERS Safety Report 18926099 (Version 2)
Quarter: 2021Q3

REPORT INFORMATION
  Report Type: Spontaneous
  Country: FR (occurrence: FR)
  Receive Date: 20210223
  Receipt Date: 20210824
  Transmission Date: 20211014
  Serious: Yes (Life-Threatening, Hospitalization)
  Sender: FDA-Public Use
  Company Number: FR-TEVA-2021-FR-1881366

PATIENT
  Age: 79 Year
  Sex: Female

DRUGS (8)
  1. MACROGOLS [Concomitant]
     Active Substance: POLYETHYLENE GLYCOLS
     Indication: WRONG PRODUCT ADMINISTERED
     Dosage: 10 GRAM
     Route: 048
     Dates: start: 20210109, end: 20210109
  2. DAFALGAN [Concomitant]
     Active Substance: ACETAMINOPHEN
     Indication: WRONG PRODUCT ADMINISTERED
     Dosage: 1 DOSAGE FORMS
     Route: 048
     Dates: start: 20210109, end: 20210109
  3. GABAPENTINE [Suspect]
     Active Substance: GABAPENTIN
     Indication: WRONG PRODUCT ADMINISTERED
     Dosage: 300 MG
     Route: 048
     Dates: start: 20210109, end: 20210109
  4. SERESTA 10 MG, COMPRIME [Suspect]
     Active Substance: OXAZEPAM
     Indication: WRONG PRODUCT ADMINISTERED
     Dosage: 1 DOSAGE FORMS
     Route: 048
     Dates: start: 20210109, end: 20210109
  5. MODOPAR 125 DISPERSIBLE (100 MG/25 MG), COMPRIME SECABLE POUR SUSPENSI [Suspect]
     Active Substance: BENSERAZIDE HYDROCHLORIDE\LEVODOPA
     Indication: WRONG PRODUCT ADMINISTERED
     Dosage: 1 DOSAGE FORMS
     Route: 048
     Dates: start: 20210109, end: 20210109
  6. PROPRANOLOL [Suspect]
     Active Substance: PROPRANOLOL HYDROCHLORIDE
     Indication: WRONG PRODUCT ADMINISTERED
     Dosage: 40 MG
     Route: 048
     Dates: start: 20210109, end: 20210109
  7. IRBESARTAN. [Suspect]
     Active Substance: IRBESARTAN
     Indication: WRONG PRODUCT ADMINISTERED
     Dosage: 300 MG
     Route: 048
     Dates: start: 20210109, end: 20210109
  8. LERCAN 10 MG, COMPRIME PELLICULE SECABLE [Suspect]
     Active Substance: LERCANIDIPINE HYDROCHLORIDE
     Indication: WRONG PRODUCT ADMINISTERED
     Dosage: 1 DOSAGE FORMS, LERCAN 10 MG, COMPRIME PELLICULE SECABLE
     Route: 048
     Dates: start: 20210109, end: 20210109

REACTIONS (4)
  - Coma [Recovered/Resolved]
  - Wrong product administered [Recovered/Resolved]
  - Cardio-respiratory arrest [Recovered/Resolved]
  - Hypotension [Recovered/Resolved]

NARRATIVE: CASE EVENT DATE: 20210109
